FAERS Safety Report 4302295-1 (Version None)
Quarter: 2004Q1

REPORT INFORMATION
  Report Type: 
  Country: None (occurrence: None)
  Receive Date: 20040223
  Receipt Date: 20040212
  Transmission Date: 20041129
  Serious: Yes (Hospitalization)
  Sender: FDA-Public Use
  Company Number: WAES 0402USA01126

PATIENT
  Age: 66 Year
  Sex: Female

DRUGS (5)
  1. CLOTIAZEPAM [Concomitant]
  2. COZAAR [Suspect]
     Indication: HYPERTENSION
     Route: 048
  3. COZAAR [Suspect]
     Route: 048
  4. PRAVASTATIN SODIUM [Suspect]
     Indication: HYPERTENSION
     Dates: start: 20031101
  5. URSODIOL [Concomitant]

REACTIONS (3)
  - ASPARTATE AMINOTRANSFERASE INCREASED [None]
  - JAUNDICE [None]
  - LIVER DISORDER [None]
